FAERS Safety Report 16787458 (Version 1)
Quarter: 2019Q3

REPORT INFORMATION
  Report Type: Spontaneous
  Country: FR (occurrence: FR)
  Receive Date: 20190909
  Receipt Date: 20190909
  Transmission Date: 20191005
  Serious: Yes (Other)
  Sender: FDA-Public Use
  Company Number: FR-MYLANLABS-2019M1083053

PATIENT
  Sex: Female

DRUGS (6)
  1. ZOLEDRONIC ACID [Suspect]
     Active Substance: ZOLEDRONIC ACID
     Indication: BARTTER^S SYNDROME
     Dosage: UNK
     Route: 042
  2. ZOLEDRONIC ACID [Suspect]
     Active Substance: ZOLEDRONIC ACID
     Indication: HYPERPARATHYROIDISM
     Dosage: UNK
     Route: 042
  3. CINACALCET. [Concomitant]
     Active Substance: CINACALCET
     Indication: BARTTER^S SYNDROME
     Dosage: 30 MG, DAILY
  4. PAMIDRONATE [Suspect]
     Active Substance: PAMIDRONATE DISODIUM
     Indication: BARTTER^S SYNDROME
     Dosage: UNK
     Route: 042
  5. CINACALCET. [Concomitant]
     Active Substance: CINACALCET
     Indication: HYPERPARATHYROIDISM
     Dosage: UNK
  6. PAMIDRONATE [Suspect]
     Active Substance: PAMIDRONATE DISODIUM
     Indication: HYPERPARATHYROIDISM
     Dosage: UNK
     Route: 042

REACTIONS (1)
  - Drug ineffective [Unknown]
